FAERS Safety Report 10719636 (Version 2)
Quarter: 2015Q1

REPORT INFORMATION
  Report Type: Spontaneous
  Country: US (occurrence: US)
  Receive Date: 20150119
  Receipt Date: 20150119
  Transmission Date: 20150721
  Serious: No
  Sender: FDA-Public Use
  Company Number: US-UNITED THERAPEUTICS-UNT-2014-010503

PATIENT
  Age: 71 Year
  Sex: Female
  Weight: 78.91 kg

DRUGS (3)
  1. TRACLEER [Concomitant]
     Active Substance: BOSENTAN\BOSENTAN MONOHYDRATE
     Indication: PRODUCT USED FOR UNKNOWN INDICATION
  2. ADCIRCA [Concomitant]
     Active Substance: TADALAFIL
     Indication: PRODUCT USED FOR UNKNOWN INDICATION
  3. REMODULIN [Suspect]
     Active Substance: TREPROSTINIL
     Indication: PULMONARY ARTERIAL HYPERTENSION
     Dosage: 0.086 ?G/KG/MIN, CONTINUING
     Route: 041
     Dates: start: 20130903

REACTIONS (7)
  - Diarrhoea [Unknown]
  - Dermatitis contact [Unknown]
  - Injection site discharge [Unknown]
  - Injection site irritation [Recovering/Resolving]
  - Injection site pruritus [Unknown]
  - Dyspnoea [Unknown]
  - Oedema peripheral [Not Recovered/Not Resolved]

NARRATIVE: CASE EVENT DATE: 2014
